FAERS Safety Report 22933782 (Version 3)
Quarter: 2025Q4

REPORT INFORMATION
  Report Type: Spontaneous
  Country: JP (occurrence: JP)
  Receive Date: 20230912
  Receipt Date: 20251229
  Transmission Date: 20260118
  Serious: Yes (Life-Threatening, Other)
  Sender: PFIZER
  Company Number: JP-PFIZER INC-PV202300151582

PATIENT
  Age: 72 Year
  Sex: Male

DRUGS (4)
  1. PACLITAXEL [Suspect]
     Active Substance: PACLITAXEL
     Indication: Choriocarcinoma
     Dosage: 200 MG/M2, EVERY 3 WEEKS FOR TWO CYCLES
  2. CARBOPLATIN [Suspect]
     Active Substance: CARBOPLATIN
     Indication: Choriocarcinoma
     Dosage: 5 AUC EVERY 3 WEEKS FOR TWO CYCLES
  3. NIVOLUMAB [Suspect]
     Active Substance: NIVOLUMAB
     Indication: Choriocarcinoma
     Dosage: 360 MG, EVERY 3 WEEKS
  4. IPILIMUMAB [Suspect]
     Active Substance: IPILIMUMAB
     Indication: Choriocarcinoma
     Dosage: 1 MG/KG EVERY 6 WEEKS

REACTIONS (3)
  - Febrile neutropenia [Unknown]
  - Rash [Recovering/Resolving]
  - Off label use [Unknown]
